FAERS Safety Report 16694556 (Version 1)
Quarter: 2019Q3

REPORT INFORMATION
  Report Type: Spontaneous
  Country: IT (occurrence: IT)
  Receive Date: 20190812
  Receipt Date: 20190812
  Transmission Date: 20191004
  Serious: Yes (Hospitalization)
  Sender: FDA-Public Use
  Company Number: IT-SA-2019SA210891

PATIENT
  Age: 91 Year
  Sex: Female

DRUGS (4)
  1. SIMVASTATIN. [Concomitant]
     Active Substance: SIMVASTATIN
     Dosage: 20 MG
     Route: 048
  2. PLENDIL [Concomitant]
     Active Substance: FELODIPINE
     Dosage: 1 DF
     Route: 048
  3. CLOPIDOGREL BISULFATE. [Suspect]
     Active Substance: CLOPIDOGREL BISULFATE
     Indication: PLATELET AGGREGATION INHIBITION
     Dosage: 75 MG, QD
     Route: 048
  4. METFORAL [Concomitant]
     Active Substance: METFORMIN HYDROCHLORIDE
     Dosage: 2 DF
     Route: 048

REACTIONS (3)
  - Subdural haematoma [Recovering/Resolving]
  - Cerebellar ischaemia [Recovering/Resolving]
  - Drug ineffective [Unknown]

NARRATIVE: CASE EVENT DATE: 20190614
